FAERS Safety Report 21073136 (Version 1)
Quarter: 2022Q3

REPORT INFORMATION
  Report Type: Spontaneous
  Country: US (occurrence: US)
  Receive Date: 20220712
  Receipt Date: 20220712
  Transmission Date: 20221026
  Serious: No
  Sender: FDA-Public Use
  Company Number: US-SA-SAC20220708001990

PATIENT
  Age: 75 Year
  Sex: Male

DRUGS (1)
  1. DUPIXENT [Suspect]
     Active Substance: DUPILUMAB
     Dosage: 300MG OTHER
     Route: 058
     Dates: start: 202206

REACTIONS (1)
  - Pain [Unknown]

NARRATIVE: CASE EVENT DATE: 20220707
